FAERS Safety Report 25050699 (Version 2)
Quarter: 2025Q1

REPORT INFORMATION
  Report Type: Spontaneous
  Country: US (occurrence: US)
  Receive Date: 20250307
  Receipt Date: 20250326
  Transmission Date: 20250409
  Serious: Yes (Other)
  Sender: Unknown Manufacturer
  Company Number: US-MELINTA THERAPEUTICS, LLC-US-MLNT-25-00045

PATIENT
  Sex: Female

DRUGS (4)
  1. TOPROL XL [Suspect]
     Active Substance: METOPROLOL SUCCINATE
     Indication: Cardiac disorder
     Route: 048
  2. TOPROL XL [Suspect]
     Active Substance: METOPROLOL SUCCINATE
     Indication: Renal disorder
  3. FARXIGA [Suspect]
     Active Substance: DAPAGLIFLOZIN PROPANEDIOL
     Indication: Cardiac disorder
     Dosage: 5 MILLIGRAM, QD
     Route: 065
  4. METOPROLOL TARTRATE [Concomitant]
     Active Substance: METOPROLOL TARTRATE
     Indication: Product used for unknown indication
     Route: 065

REACTIONS (11)
  - Leukaemia [Unknown]
  - Blood pressure decreased [Unknown]
  - Aphasia [Unknown]
  - Emotional disorder [Unknown]
  - Renal disorder [Unknown]
  - Pollakiuria [Unknown]
  - Frequent bowel movements [Unknown]
  - Anal incontinence [Unknown]
  - Diarrhoea [Unknown]
  - Feeling abnormal [Unknown]
  - Off label use [Unknown]
